FAERS Safety Report 4706288-1 (Version None)
Quarter: 2005Q2

REPORT INFORMATION
  Report Type: 
  Country: None (occurrence: None)
  Receive Date: 20050208
  Receipt Date: 20050208
  Transmission Date: 20051028
  Serious: Yes (Other)
  Sender: FDA-Public Use
  Company Number: None

PATIENT
  Sex: Female
  Weight: 58.8769 kg

DRUGS (5)
  1. HYDROCODONE BITARTRATE + ACETAMINOPHEN [Suspect]
     Dosage: ONE PO QID PRN
     Dates: start: 20040922, end: 20041004
  2. HYDROCODONE BITARTRATE + ACETAMINOPHEN [Suspect]
     Dosage: ONE PO QID PRN
     Route: 048
     Dates: start: 20030613, end: 20030614
  3. FUROSEMIDE [Concomitant]
  4. PROTONIX [Concomitant]
  5. LEXAPRO [Concomitant]

REACTIONS (2)
  - DRUG INEFFECTIVE [None]
  - PRURITUS [None]
